FAERS Safety Report 5845954-1 (Version None)
Quarter: 2008Q3

REPORT INFORMATION
  Report Type: 
  Country: None (occurrence: None)
  Receive Date: 20080814
  Receipt Date: 20080805
  Transmission Date: 20090109
  Serious: Yes (Hospitalization)
  Sender: FDA-Public Use
  Company Number: FR-PFIZER INC-2008015551

PATIENT
  Sex: Male

DRUGS (4)
  1. VIRACEPT [Suspect]
     Indication: HIV TEST POSITIVE
     Route: 048
     Dates: start: 19981002, end: 20070608
  2. COMBIVIR [Suspect]
     Indication: HIV TEST POSITIVE
     Route: 048
     Dates: start: 19981002
  3. REYATAZ [Concomitant]
  4. KALETRA [Concomitant]
     Dates: start: 20070608, end: 20070731

REACTIONS (1)
  - ACUTE MYELOID LEUKAEMIA [None]
